FAERS Safety Report 24035448 (Version 6)
Quarter: 2024Q3

REPORT INFORMATION
  Report Type: Spontaneous
  Country: US (occurrence: US)
  Receive Date: 20240701
  Receipt Date: 20240828
  Transmission Date: 20241017
  Serious: No
  Sender: PFIZER
  Company Number: US-PFIZER INC-202400203388

PATIENT
  Sex: Female
  Weight: 68.934 kg

DRUGS (1)
  1. PAXLOVID [Suspect]
     Active Substance: NIRMATRELVIR\RITONAVIR
     Indication: COVID-19 treatment
     Dosage: [NIRMATRELVIR 300 MG]/[RITONAVIR 100 MG]; 2X/DAY
     Dates: start: 20240627, end: 20240701

REACTIONS (6)
  - Lip dry [Unknown]
  - Dysgeusia [Unknown]
  - Dry mouth [Unknown]
  - Nasal discomfort [Recovered/Resolved]
  - Oropharyngeal discomfort [Recovered/Resolved]
  - Condition aggravated [Unknown]

NARRATIVE: CASE EVENT DATE: 20240627
